FAERS Safety Report 7390163-0 (Version None)
Quarter: 2011Q2

REPORT INFORMATION
  Report Type: 
  Country: None (occurrence: None)
  Receive Date: 20110401
  Receipt Date: 20110325
  Transmission Date: 20111010
  Serious: Yes (Other)
  Sender: FDA-Public Use
  Company Number: PHHY2011JP25078

PATIENT
  Age: 80 Year
  Sex: Female

DRUGS (1)
  1. ZADITEN OPHTHA EYE DROPS [Suspect]
     Route: 047
     Dates: start: 20110301, end: 20110301

REACTIONS (4)
  - DERMATITIS [None]
  - EYELID OEDEMA [None]
  - SCAB [None]
  - ERYTHEMA [None]
